FAERS Safety Report 6245014-4 (Version None)
Quarter: 2009Q2

REPORT INFORMATION
  Report Type: 
  Country: None (occurrence: None)
  Receive Date: 20090623
  Receipt Date: 20090623
  Transmission Date: 20091009
  Serious: Yes (Other)
  Sender: FDA-Public Use
  Company Number: None

PATIENT
  Age: 32 Year
  Sex: Female
  Weight: 86.1834 kg

DRUGS (4)
  1. INTELENCE [Suspect]
     Indication: HIV INFECTION
     Dosage: 200MG BID -TWICE DAILY- PO
     Route: 048
     Dates: start: 20090609, end: 20090618
  2. JANUVIA [Concomitant]
  3. DETROL LA [Concomitant]
  4. TRUVADA [Concomitant]

REACTIONS (3)
  - LIP SWELLING [None]
  - ORAL DISORDER [None]
  - RASH GENERALISED [None]
